FAERS Safety Report 16839033 (Version 4)
Quarter: 2019Q4

REPORT INFORMATION
  Report Type: Report from Study
  Country: DE (occurrence: DE)
  Receive Date: 20190923
  Receipt Date: 20191226
  Transmission Date: 20200122
  Serious: Yes (Hospitalization, Disabling)
  Sender: FDA-Public Use
  Company Number: DE-ROCHE-2416049

PATIENT
  Age: 40 Year
  Sex: Female

DRUGS (1)
  1. TRASTUZUMAB EMTANSINE [Suspect]
     Active Substance: ADO-TRASTUZUMAB EMTANSINE
     Indication: BREAST CANCER
     Dosage: DATE OF MOST RECENT DOSE (244.8 MG)OF TRASTUZUMAB EMTANSINE PRIOR TO ADVERSE EVENT ONSET: 28/AUG/201
     Route: 042
     Dates: start: 20150224

REACTIONS (1)
  - Hepatopulmonary syndrome [Not Recovered/Not Resolved]

NARRATIVE: CASE EVENT DATE: 20190902
